FAERS Safety Report 18208291 (Version 1)
Quarter: 2020Q3

REPORT INFORMATION
  Report Type: Spontaneous
  Country: JP (occurrence: JP)
  Receive Date: 20200828
  Receipt Date: 20200828
  Transmission Date: 20201103
  Serious: Yes (Hospitalization, Other)
  Sender: FDA-Public Use
  Company Number: JP-ELI_LILLY_AND_COMPANY-JP202008007782AA

PATIENT
  Age: 85 Year
  Sex: Male

DRUGS (3)
  1. HUMALOG MIX [Suspect]
     Active Substance: INSULIN LISPRO
     Indication: TYPE 2 DIABETES MELLITUS
     Route: 058
  2. HUMALOG MIX [Suspect]
     Active Substance: INSULIN LISPRO
     Dosage: 30 INTERNATIONAL UNIT, DAILY
     Route: 058
  3. HUMALOG MIX [Suspect]
     Active Substance: INSULIN LISPRO
     Dosage: 26 INTERNATIONAL UNIT, DAILY
     Route: 058

REACTIONS (3)
  - Peripheral arterial occlusive disease [Unknown]
  - Hypoglycaemia [Recovered/Resolved]
  - Atrioventricular block complete [Unknown]
